FAERS Safety Report 22165712 (Version 1)
Quarter: 2023Q2

REPORT INFORMATION
  Report Type: Report from Study
  Country: CO (occurrence: CO)
  Receive Date: 20230403
  Receipt Date: 20230403
  Transmission Date: 20230721
  Serious: Yes (Hospitalization)
  Sender: FDA-Public Use
  Company Number: CO-JNJFOC-20230367375

PATIENT
  Age: 4 Decade
  Sex: Male
  Weight: 70 kg

DRUGS (9)
  1. INVEGA SUSTENNA [Suspect]
     Active Substance: PALIPERIDONE PALMITATE
     Indication: Schizophrenia
     Route: 030
     Dates: start: 20220726
  2. INVEGA SUSTENNA [Suspect]
     Active Substance: PALIPERIDONE PALMITATE
  3. INVEGA SUSTENNA [Suspect]
     Active Substance: PALIPERIDONE PALMITATE
  4. LUVOX [Concomitant]
     Active Substance: FLUVOXAMINE MALEATE
  5. RIVOTRIL [Concomitant]
     Active Substance: CLONAZEPAM
  6. CLOZAPINE [Concomitant]
     Active Substance: CLOZAPINE
  7. KEPPRA [Concomitant]
     Active Substance: LEVETIRACETAM
  8. QUETIAPINE [Concomitant]
     Active Substance: QUETIAPINE
  9. IMIPRAMINE [Concomitant]
     Active Substance: IMIPRAMINE

REACTIONS (7)
  - Epilepsy [Recovered/Resolved]
  - Tachycardia [Not Recovered/Not Resolved]
  - Malaise [Not Recovered/Not Resolved]
  - Anxiety [Not Recovered/Not Resolved]
  - Hyperhidrosis [Not Recovered/Not Resolved]
  - Abnormal behaviour [Not Recovered/Not Resolved]
  - Thirst [Not Recovered/Not Resolved]

NARRATIVE: CASE EVENT DATE: 20220101
